FAERS Safety Report 22258151 (Version 2)
Quarter: 2023Q2

REPORT INFORMATION
  Report Type: Report from Study
  Country: IT (occurrence: IT)
  Receive Date: 20230427
  Receipt Date: 20230529
  Transmission Date: 20230722
  Serious: Yes (Other)
  Sender: FDA-Public Use
  Company Number: IT-002147023-NVSC2023IT094517

PATIENT
  Sex: Male

DRUGS (9)
  1. RYDAPT [Suspect]
     Active Substance: MIDOSTAURIN
     Indication: Systemic mastocytosis
     Dosage: 25 UNK, BID
     Route: 065
     Dates: start: 20190715, end: 20190722
  2. RYDAPT [Suspect]
     Active Substance: MIDOSTAURIN
     Dosage: 50 UNK, BID
     Route: 065
     Dates: start: 20190723, end: 20190820
  3. RYDAPT [Suspect]
     Active Substance: MIDOSTAURIN
     Dosage: 75 UNK, BID
     Route: 065
     Dates: start: 20190821, end: 20200406
  4. RYDAPT [Suspect]
     Active Substance: MIDOSTAURIN
     Dosage: 50 UNK, BID
     Route: 065
     Dates: start: 20200407, end: 20210412
  5. RYDAPT [Suspect]
     Active Substance: MIDOSTAURIN
     Dosage: 100 UNK, BID
     Route: 065
     Dates: start: 20210413, end: 20220629
  6. RYDAPT [Suspect]
     Active Substance: MIDOSTAURIN
     Dosage: 50 UNK, BID
     Route: 065
     Dates: start: 20220630, end: 20220830
  7. RYDAPT [Suspect]
     Active Substance: MIDOSTAURIN
     Dosage: 75 UNK, BID
     Route: 065
     Dates: start: 20220831, end: 20221129
  8. RYDAPT [Suspect]
     Active Substance: MIDOSTAURIN
     Dosage: 75 UNK, BID
     Route: 065
     Dates: start: 20230125, end: 20230321
  9. RYDAPT [Suspect]
     Active Substance: MIDOSTAURIN
     Dosage: 100 UNK, BID
     Route: 065
     Dates: start: 20230322

REACTIONS (1)
  - Gastrointestinal oedema [Recovered/Resolved]

NARRATIVE: CASE EVENT DATE: 20221129
